FAERS Safety Report 8427769-3 (Version None)
Quarter: 2012Q2

REPORT INFORMATION
  Report Type: 
  Country: None (occurrence: None)
  Receive Date: 20120323
  Receipt Date: 20111025
  Transmission Date: 20120825
  Serious: Yes (Other)
  Sender: FDA-Public Use
  Company Number: 163-21880-11114042

PATIENT
  Age: 62 Year
  Sex: Female

DRUGS (4)
  1. REVLIMID [Suspect]
     Dosage: 25 MG, QD X 21 DAYS, PO
     Route: 048
     Dates: start: 20060913, end: 20070227
  2. REVLIMID [Suspect]
     Dosage: 25 MG, QD X 21 DAYS, PO
     Route: 048
     Dates: start: 20070416, end: 20101231
  3. REVLIMID [Suspect]
     Dosage: 25 MG, QD X 21 DAYS, PO
     Route: 048
     Dates: start: 20110101
  4. WARFARIN SODIUM [Concomitant]

REACTIONS (3)
  - DIARRHOEA [None]
  - FATIGUE [None]
  - THROMBOSIS [None]
